FAERS Safety Report 8389084-6 (Version None)
Quarter: 2012Q2

REPORT INFORMATION
  Report Type: 
  Country: None (occurrence: None)
  Receive Date: 20120528
  Receipt Date: 20120519
  Transmission Date: 20120825
  Serious: Yes (Death)
  Sender: FDA-Public Use
  Company Number: PHHY2011SD100668

PATIENT
  Sex: Female
  Weight: 81 kg

DRUGS (1)
  1. GLEEVEC [Suspect]
     Indication: CHRONIC LYMPHOCYTIC LEUKAEMIA TRANSFORMATION
     Dosage: 600 MG, DAILY
     Dates: start: 20110717

REACTIONS (1)
  - DEATH [None]
